FAERS Safety Report 20370069 (Version 1)
Quarter: 2022Q1

REPORT INFORMATION
  Report Type: Spontaneous
  Country: US (occurrence: US)
  Receive Date: 20220124
  Receipt Date: 20220124
  Transmission Date: 20220424
  Serious: No
  Sender: FDA-Public Use
  Company Number: US-JNJFOC-20220127892

PATIENT
  Sex: Female

DRUGS (16)
  1. ZYRTEC [Suspect]
     Active Substance: CETIRIZINE HYDROCHLORIDE
     Indication: Upper-airway cough syndrome
     Route: 065
  2. ZYRTEC [Suspect]
     Active Substance: CETIRIZINE HYDROCHLORIDE
     Indication: Nasal congestion
  3. ZYRTEC [Suspect]
     Active Substance: CETIRIZINE HYDROCHLORIDE
     Indication: Sinus disorder
  4. BENADRYL [Concomitant]
     Active Substance: DIPHENHYDRAMINE HYDROCHLORIDE
     Indication: Upper-airway cough syndrome
     Route: 065
  5. BENADRYL [Concomitant]
     Active Substance: DIPHENHYDRAMINE HYDROCHLORIDE
     Indication: Nasal congestion
  6. BENADRYL [Concomitant]
     Active Substance: DIPHENHYDRAMINE HYDROCHLORIDE
     Indication: Sinus disorder
  7. DELSYM [Concomitant]
     Active Substance: DEXTROMETHORPHAN
     Indication: Upper-airway cough syndrome
  8. DELSYM [Concomitant]
     Active Substance: DEXTROMETHORPHAN
     Indication: Nasal congestion
  9. DELSYM [Concomitant]
     Active Substance: DEXTROMETHORPHAN
     Indication: Sinus disorder
  10. AFRIN [Concomitant]
     Active Substance: OXYMETAZOLINE
     Indication: Upper-airway cough syndrome
     Route: 065
  11. AFRIN [Concomitant]
     Active Substance: OXYMETAZOLINE
     Indication: Nasal congestion
  12. AFRIN [Concomitant]
     Active Substance: OXYMETAZOLINE
     Indication: Sinus disorder
  13. MUCINEX [Concomitant]
     Active Substance: GUAIFENESIN
  14. FLONASE [Concomitant]
     Active Substance: FLUTICASONE PROPIONATE
     Indication: Upper-airway cough syndrome
     Route: 065
  15. FLONASE [Concomitant]
     Active Substance: FLUTICASONE PROPIONATE
     Indication: Nasal congestion
  16. FLONASE [Concomitant]
     Active Substance: FLUTICASONE PROPIONATE
     Indication: Sinus disorder

REACTIONS (1)
  - Product use in unapproved indication [Unknown]
